FAERS Safety Report 9648984 (Version 1)
Quarter: 2013Q4

REPORT INFORMATION
  Report Type: Spontaneous
  Country: US (occurrence: None)
  Receive Date: 20131018
  Receipt Date: 20131018
  Transmission Date: 20140711
  Serious: No
  Sender: FDA-Public Use
  Company Number: AEGR000085

PATIENT
  Age: 70 Year
  Sex: Female
  Weight: 81.6 kg

DRUGS (7)
  1. JUXTAPID(LOMITAPID)CAPSULE [Suspect]
     Indication: BLOOD CHOLESTEROL INCREASED
     Route: 048
     Dates: start: 201304, end: 20130712
  2. LASIX (FUROSEMIDE) [Concomitant]
  3. ATENOLOL (ATENOLOL) [Concomitant]
  4. LEVOTHYROXINE SODIUM (LEVOTHYROXINE SODIUM) [Concomitant]
  5. OMEPRAZOLE (OMEPRAZOLE) [Concomitant]
  6. LEVEMIR (INSULIN DETEMIR) [Concomitant]
  7. APIDRA (INSULIN GLULISINE) [Concomitant]

REACTIONS (2)
  - Diarrhoea [None]
  - Off label use [None]
